FAERS Safety Report 9686994 (Version 2)
Quarter: 2013Q4

REPORT INFORMATION
  Report Type: Spontaneous
  Country: JP (occurrence: JP)
  Receive Date: 20131113
  Receipt Date: 20131215
  Transmission Date: 20140711
  Serious: Yes (Life-Threatening, Other)
  Sender: FDA-Public Use
  Company Number: JP-ABBVIE-13P-087-1168554-00

PATIENT
  Age: 72 Year
  Sex: Male
  Weight: 56 kg

DRUGS (4)
  1. LEUPLIN SR [Suspect]
     Indication: PROSTATE CANCER
     Route: 058
     Dates: start: 20130610, end: 20131007
  2. CASODEX [Suspect]
     Indication: PROSTATE CANCER
     Route: 048
     Dates: start: 20130520, end: 20131105
  3. ACTONEL [Concomitant]
     Indication: PRODUCT USED FOR UNKNOWN INDICATION
  4. SEIHAITO [Concomitant]
     Indication: PRODUCT USED FOR UNKNOWN INDICATION

REACTIONS (1)
  - Interstitial lung disease [Not Recovered/Not Resolved]
